FAERS Safety Report 5530237-X (Version None)
Quarter: 2007Q4

REPORT INFORMATION
  Report Type: 
  Country: None (occurrence: None)
  Receive Date: 20071130
  Receipt Date: 20071126
  Transmission Date: 20080405
  Serious: Yes (Other)
  Sender: FDA-Public Use
  Company Number: US-ALLERGAN-0712989US

PATIENT
  Sex: Male

DRUGS (6)
  1. ACULAR LS [Suspect]
     Indication: EYE INFLAMMATION
     Dosage: 1 GTT, UNK
     Route: 047
     Dates: start: 20071012, end: 20071017
  2. ACULAR LS [Suspect]
     Indication: EYE IRRITATION
  3. ACULAR LS [Suspect]
     Indication: EYE PAIN
  4. VIGAMOX [Concomitant]
     Indication: EYE INFLAMMATION
     Dates: start: 20071012, end: 20071017
  5. TRAVATAN [Concomitant]
     Indication: GLAUCOMA
  6. BETIMOL [Concomitant]
     Indication: GLAUCOMA

REACTIONS (1)
  - ULCERATIVE KERATITIS [None]
